FAERS Safety Report 5682327-9 (Version None)
Quarter: 2008Q1

REPORT INFORMATION
  Report Type: 
  Country: None (occurrence: None)
  Receive Date: 20080327
  Receipt Date: 20080103
  Transmission Date: 20080703
  Serious: No
  Sender: FDA-Public Use
  Company Number: US-BAUSCH-2008BL000034

PATIENT
  Age: 46 Year
  Sex: Female

DRUGS (3)
  1. ALREX [Suspect]
     Indication: EYE INFLAMMATION
     Route: 047
     Dates: start: 20071231, end: 20080123
  2. RESTASIS [Suspect]
     Indication: KERATOCONJUNCTIVITIS SICCA
     Route: 047
  3. REFRESH PLUS LUBRICANT EYE DROPS [Concomitant]
     Indication: KERATOCONJUNCTIVITIS SICCA
     Route: 047
     Dates: start: 20071231

REACTIONS (4)
  - ERYTHEMA OF EYELID [None]
  - EYE DISCHARGE [None]
  - EYELID OEDEMA [None]
  - MADAROSIS [None]
